FAERS Safety Report 9305440 (Version 1)
Quarter: 2013Q2

REPORT INFORMATION
  Report Type: Spontaneous
  Country: DE (occurrence: DE)
  Receive Date: 20130523
  Receipt Date: 20130523
  Transmission Date: 20140414
  Serious: Yes (Hospitalization, Congenital Anomaly)
  Sender: FDA-Public Use
  Company Number: DE-ASTRAZENECA-2013SE34016

PATIENT
  Age: 63 Year
  Sex: Male
  Weight: 112 kg

DRUGS (2)
  1. SCANDICAIN 1% [Suspect]
     Indication: LOCAL ANAESTHESIA
     Route: 053
  2. MIDAZOLAM [Suspect]
     Indication: SEDATION
     Route: 042

REACTIONS (4)
  - Eye swelling [Unknown]
  - Eyelid oedema [Unknown]
  - Nasal oedema [Unknown]
  - Sneezing [Unknown]
